FAERS Safety Report 5573977-9 (Version None)
Quarter: 2007Q4

REPORT INFORMATION
  Report Type: 
  Country: None (occurrence: None)
  Receive Date: 20071211
  Receipt Date: 20071127
  Transmission Date: 20080405
  Serious: Yes (Disabling, Other)
  Sender: FDA-Public Use
  Company Number: WSDF_00684

PATIENT
  Age: 77 Year
  Sex: Female
  Weight: 68.0396 kg

DRUGS (8)
  1. WINRHO SDF [Suspect]
     Indication: IDIOPATHIC THROMBOCYTOPENIC PURPURA
  2. SYNTHROID [Concomitant]
  3. PERTONICS [Concomitant]
  4. GEMFIBROZIL [Concomitant]
  5. LISINOPRIL [Concomitant]
  6. CALCIUM WITH VITAMIN D [Concomitant]
  7. VITAMIN CAP [Concomitant]
  8. PREDNISONE [Concomitant]

REACTIONS (4)
  - CEREBRAL ARTERY EMBOLISM [None]
  - CEREBROVASCULAR ACCIDENT [None]
  - SPLINTER HAEMORRHAGES [None]
  - TRANSIENT ISCHAEMIC ATTACK [None]
